FAERS Safety Report 7738817-8 (Version None)
Quarter: 2011Q3

REPORT INFORMATION
  Report Type: 
  Country: None (occurrence: None)
  Receive Date: 20110906
  Receipt Date: 20110826
  Transmission Date: 20111222
  Serious: Yes (Other)
  Sender: FDA-Public Use
  Company Number: TPA2011A05197

PATIENT
  Age: 77 Year
  Sex: Male

DRUGS (1)
  1. ACTOS [Suspect]
     Dosage: 15 MG
     Dates: start: 20020101

REACTIONS (2)
  - BLADDER CANCER [None]
  - HAEMATURIA [None]
